FAERS Safety Report 10652720 (Version 9)
Quarter: 2015Q3

REPORT INFORMATION
  Report Type: Report from Study
  Country: US (occurrence: US)
  Receive Date: 20141215
  Receipt Date: 20150730
  Transmission Date: 20151125
  Serious: Yes (Hospitalization)
  Sender: FDA-Public Use
  Company Number: US-TEVA-527678USA

PATIENT
  Age: 72 Year
  Sex: Male
  Weight: 75 kg

DRUGS (55)
  1. NORMAL SALINE SOLUTION [Concomitant]
     Indication: PROPHYLAXIS
     Route: 042
     Dates: start: 20140608, end: 20140611
  2. NORMAL SALINE SOLUTION [Concomitant]
     Indication: PROPHYLAXIS AGAINST DEHYDRATION
  3. VIGRAN [Concomitant]
     Indication: SUPPLEMENTATION THERAPY
     Dosage: 1 DOSAGE FORMS DAILY;
     Dates: start: 20140610
  4. PROTONIX [Concomitant]
     Active Substance: PANTOPRAZOLE SODIUM
     Indication: GASTROOESOPHAGEAL REFLUX DISEASE
     Dosage: 40 MILLIGRAM DAILY;
     Dates: start: 20140610
  5. ACYCLOVIR. [Concomitant]
     Active Substance: ACYCLOVIR
     Indication: INFECTION PROPHYLAXIS
     Dosage: 800 MILLIGRAM DAILY;
     Route: 065
     Dates: start: 20140610
  6. POTASSIUM CHLORIDE. [Concomitant]
     Active Substance: POTASSIUM CHLORIDE
     Indication: HYPOKALAEMIA
     Dates: start: 20140917
  7. ACETAMINOPHEN. [Concomitant]
     Active Substance: ACETAMINOPHEN
     Dates: start: 20140903, end: 20140903
  8. DIPHENHYDRAMINE. [Concomitant]
     Active Substance: DIPHENHYDRAMINE
     Dates: start: 20140903, end: 20140903
  9. ZOLPIDEM [Concomitant]
     Active Substance: ZOLPIDEM\ZOLPIDEM TARTRATE
     Indication: SLEEP DISORDER
  10. PEGFILGRASTIM [Concomitant]
     Active Substance: PEGFILGRASTIM
     Dosage: ONCE
     Route: 058
     Dates: start: 20141003, end: 20141003
  11. LORAZEPAM. [Concomitant]
     Active Substance: LORAZEPAM
     Indication: PROPHYLAXIS
     Dosage: .5 MILLIGRAM DAILY;
     Dates: start: 20140806, end: 20140806
  12. ACETAMINOPHEN. [Concomitant]
     Active Substance: ACETAMINOPHEN
     Dates: start: 20141029, end: 20141029
  13. DIPHENHYDRAMINE. [Concomitant]
     Active Substance: DIPHENHYDRAMINE
     Dates: start: 20141001, end: 20141001
  14. ZOLPIDEM [Concomitant]
     Active Substance: ZOLPIDEM\ZOLPIDEM TARTRATE
     Indication: INSOMNIA
     Dosage: QHS PRN
     Route: 065
     Dates: start: 20140608, end: 20140610
  15. PEGFILGRASTIM [Concomitant]
     Active Substance: PEGFILGRASTIM
     Dosage: ONCE
     Route: 058
     Dates: start: 20140808, end: 20140808
  16. LORAZEPAM. [Concomitant]
     Active Substance: LORAZEPAM
     Dosage: .5 MILLIGRAM DAILY;
     Dates: start: 20141029, end: 20141029
  17. PROCHLORPERAZINE. [Concomitant]
     Active Substance: PROCHLORPERAZINE
     Indication: VOMITING
  18. POTASSIUM CHLORIDE. [Concomitant]
     Active Substance: POTASSIUM CHLORIDE
     Indication: PROPHYLAXIS
     Dosage: 20 MILLIEQUIVALENTS DAILY;
     Dates: start: 20140625
  19. ACETAMINOPHEN. [Concomitant]
     Active Substance: ACETAMINOPHEN
     Indication: PROPHYLAXIS
     Route: 065
     Dates: start: 20140609, end: 20140609
  20. ACETAMINOPHEN. [Concomitant]
     Active Substance: ACETAMINOPHEN
     Dates: start: 20140710, end: 20140710
  21. DIPHENHYDRAMINE. [Concomitant]
     Active Substance: DIPHENHYDRAMINE
     Indication: HYPERSENSITIVITY
     Dates: start: 20140710, end: 20140710
  22. PEGFILGRASTIM [Concomitant]
     Active Substance: PEGFILGRASTIM
     Dosage: ONCE
     Route: 058
     Dates: start: 20140905, end: 20140905
  23. PEGFILGRASTIM [Concomitant]
     Active Substance: PEGFILGRASTIM
     Dosage: ONCE
     Route: 058
     Dates: start: 20141031, end: 20141031
  24. RITUXIMAB [Suspect]
     Active Substance: RITUXIMAB
     Indication: NON-HODGKIN^S LYMPHOMA
     Dosage: DAY 1 OF EACH 28 DAY CYCLE
     Route: 042
     Dates: start: 20140609
  25. ONDANSETRON [Concomitant]
     Active Substance: ONDANSETRON
     Dosage: DAY 2 AND DAY 3
     Dates: start: 20140710, end: 20140711
  26. ONDANSETRON [Concomitant]
     Active Substance: ONDANSETRON
     Dosage: DAY 1 AND DAY 2
     Dates: start: 20140904, end: 20140904
  27. ONDANSETRON [Concomitant]
     Active Substance: ONDANSETRON
     Dates: start: 20141030, end: 20141030
  28. SIMVASTATIN. [Concomitant]
     Active Substance: SIMVASTATIN
     Indication: HYPERLIPIDAEMIA
     Dosage: 40 MILLIGRAM DAILY; AT BEDTIME
     Dates: start: 20111028
  29. BENDAMUSTINE [Suspect]
     Active Substance: BENDAMUSTINE
     Indication: NON-HODGKIN^S LYMPHOMA
     Dosage: DAYS 1 AND 2 OF EACH 28 DAY CYCLE
     Route: 042
     Dates: start: 20140610
  30. PAROXETINE [Concomitant]
     Active Substance: PAROXETINE\PAROXETINE HYDROCHLORIDE
     Indication: ANXIETY
     Dosage: 20 MILLIGRAM DAILY;
     Route: 065
     Dates: start: 20140610
  31. LORAZEPAM. [Concomitant]
     Active Substance: LORAZEPAM
     Indication: PROPHYLAXIS OF NAUSEA AND VOMITING
     Dosage: 40 MILLIGRAM DAILY;
     Dates: start: 20140610, end: 20140610
  32. ONDANSETRON [Concomitant]
     Active Substance: ONDANSETRON
     Dosage: DAY 1 AND DAY 2
     Dates: start: 20140806, end: 20140807
  33. ONDANSETRON [Concomitant]
     Active Substance: ONDANSETRON
     Dosage: 8 MILLIGRAM DAILY;
     Dates: start: 20141001, end: 20141002
  34. POTASSIUM CHLORIDE. [Concomitant]
     Active Substance: POTASSIUM CHLORIDE
     Dates: start: 20141002
  35. DIPHENHYDRAMINE. [Concomitant]
     Active Substance: DIPHENHYDRAMINE
     Dates: start: 20140806, end: 20140806
  36. PEGFILGRASTIM [Concomitant]
     Active Substance: PEGFILGRASTIM
     Indication: NEUTROPENIA
     Dosage: ONCE
     Route: 058
     Dates: start: 20140612, end: 20140612
  37. PEGFILGRASTIM [Concomitant]
     Active Substance: PEGFILGRASTIM
     Dosage: ONCE
     Route: 058
     Dates: start: 20140712, end: 20140712
  38. ABT-199 [Suspect]
     Active Substance: VENETOCLAX
     Indication: NON-HODGKIN^S LYMPHOMA
     Dosage: DAYS 1-7 OF EACH 28 DAY CYCLE
     Route: 048
     Dates: start: 20140610
  39. ALLOPURINOL. [Concomitant]
     Active Substance: ALLOPURINOL
     Indication: PROPHYLAXIS
     Dosage: 300 MILLIGRAM DAILY;
     Dates: start: 20140607
  40. COLACE [Concomitant]
     Active Substance: DOCUSATE SODIUM
     Indication: CONSTIPATION PROPHYLAXIS
     Dosage: 200 MILLIGRAM DAILY;
     Dates: start: 20140610
  41. ONDANSETRON [Concomitant]
     Active Substance: ONDANSETRON
     Indication: NAUSEA
     Dosage: EVERY 8 HRS PRN
     Route: 065
     Dates: start: 20140610
  42. ONDANSETRON [Concomitant]
     Active Substance: ONDANSETRON
     Dates: start: 20141029, end: 20141029
  43. DIPHENHYDRAMINE. [Concomitant]
     Active Substance: DIPHENHYDRAMINE
     Indication: PROPHYLACTIC CHEMOTHERAPY
     Dates: start: 20140609, end: 20140609
  44. LORAZEPAM. [Concomitant]
     Active Substance: LORAZEPAM
     Indication: PROPHYLAXIS OF NAUSEA AND VOMITING
     Dosage: .5 MILLIGRAM DAILY;
     Dates: start: 20140710, end: 20140710
  45. PROCHLORPERAZINE. [Concomitant]
     Active Substance: PROCHLORPERAZINE
     Indication: NAUSEA
     Dosage: TID PRN
     Route: 065
     Dates: start: 20140610
  46. ONDANSETRON [Concomitant]
     Active Substance: ONDANSETRON
     Indication: PROPHYLAXIS OF NAUSEA AND VOMITING
     Dates: start: 20140611, end: 20140611
  47. OXYCODONE [Concomitant]
     Active Substance: OXYCODONE
     Indication: PAIN
     Dosage: EVERY 6 HRS AS REQUIRED
     Route: 065
     Dates: start: 20140610
  48. ACETAMINOPHEN. [Concomitant]
     Active Substance: ACETAMINOPHEN
     Dates: start: 20141001, end: 20141001
  49. LORAZEPAM. [Concomitant]
     Active Substance: LORAZEPAM
     Indication: PROPHYLAXIS OF NAUSEA AND VOMITING
     Dosage: .5 MILLIGRAM DAILY;
     Dates: start: 20140903, end: 20140903
  50. LORAZEPAM. [Concomitant]
     Active Substance: LORAZEPAM
     Dosage: EVERY 6 HOURS AS NEEDED
     Dates: start: 20141001, end: 20141002
  51. ONDANSETRON [Concomitant]
     Active Substance: ONDANSETRON
     Indication: VOMITING
     Dates: start: 20140610, end: 20140610
  52. POTASSIUM CHLORIDE. [Concomitant]
     Active Substance: POTASSIUM CHLORIDE
     Dates: start: 20141015, end: 20141015
  53. ACETAMINOPHEN. [Concomitant]
     Active Substance: ACETAMINOPHEN
     Dates: start: 20140806, end: 20140806
  54. DIPHENHYDRAMINE. [Concomitant]
     Active Substance: DIPHENHYDRAMINE
     Dates: start: 20141029, end: 20141029
  55. MAGNESIUM HYDROXIDE. [Concomitant]
     Active Substance: MAGNESIUM HYDROXIDE
     Indication: CONSTIPATION PROPHYLAXIS
     Dates: start: 20140610, end: 20140610

REACTIONS (1)
  - Systemic inflammatory response syndrome [Recovered/Resolved]

NARRATIVE: CASE EVENT DATE: 20141010
